FAERS Safety Report 6678285-0 (Version None)
Quarter: 2010Q2

REPORT INFORMATION
  Report Type: 
  Country: None (occurrence: None)
  Receive Date: 20100408
  Receipt Date: 20100325
  Transmission Date: 20101027
  Serious: Yes (Hospitalization, Other)
  Sender: FDA-Public Use
  Company Number: 1000012930

PATIENT
  Age: 40 Year
  Sex: Male

DRUGS (5)
  1. ESCITALOPRAM OXALATE [Suspect]
     Dosage: (14 DOSAGE FORMS, ONCE), ORAL; 40 MG (20 MG, 2 IN 1 D), ORAL
     Route: 048
     Dates: start: 20100205, end: 20100205
  2. EN (2 MILLIGRAM, TABLETS) [Suspect]
     Dosage: (20 DOSAGE FORMS, ONCE), ORAL; 6 MG (2 MG, 3 IN 1 D), ORAL
     Route: 048
     Dates: start: 20100205, end: 20100205
  3. AKINETON [Suspect]
     Dosage: (10 DOSAGE FORMS, ONCE), ORAL; 8 MG (4 MG, 2 IN 1 D), ORAL
     Route: 048
     Dates: start: 20100205, end: 20100205
  4. CARBOLITHIUM (300 MILLIGRAM, CAPSULES) [Suspect]
     Dosage: (10 DOSAGE FORMS, ONCE), ORAL; 900 MG (300 MG, 3 IN 1 D), ORAL
     Route: 048
     Dates: start: 20100205, end: 20100205
  5. RISPERDAL [Concomitant]

REACTIONS (5)
  - AGITATION [None]
  - ELECTROCARDIOGRAM REPOLARISATION ABNORMALITY [None]
  - MULTIPLE DRUG OVERDOSE INTENTIONAL [None]
  - OVERDOSE [None]
  - SINUS BRADYCARDIA [None]
